FAERS Safety Report 20841283 (Version 4)
Quarter: 2022Q3

REPORT INFORMATION
  Report Type: Report from Study
  Country: CH (occurrence: CH)
  Receive Date: 20220517
  Receipt Date: 20220713
  Transmission Date: 20221027
  Serious: Yes (Death, Hospitalization, Other)
  Sender: FDA-Public Use
  Company Number: CH-ABBVIE-22K-151-4393969-00

PATIENT
  Sex: Male

DRUGS (4)
  1. CARBIDOPA\LEVODOPA [Suspect]
     Active Substance: CARBIDOPA\LEVODOPA
     Indication: Parkinson^s disease
     Route: 050
     Dates: start: 20200508
  2. CARBIDOPA\LEVODOPA [Suspect]
     Active Substance: CARBIDOPA\LEVODOPA
     Dosage: MD: 7 ML, CRD: 6 ML/H, CRN: 2 ML/H, ED: 3.2 ML /1 CASSETTE A?DAY
     Route: 050
     Dates: start: 20220106, end: 20220514
  3. NEVANAC [Concomitant]
     Active Substance: NEPAFENAC
     Indication: Product used for unknown indication
  4. ATROPINE [Concomitant]
     Active Substance: ATROPINE
     Indication: Product used for unknown indication

REACTIONS (12)
  - Cardiac failure [Fatal]
  - Malabsorption [Not Recovered/Not Resolved]
  - Cataract [Not Recovered/Not Resolved]
  - Cholecystectomy [Unknown]
  - Blindness [Unknown]
  - Intensive care [Unknown]
  - Large intestinal obstruction [Unknown]
  - Abdominal hernia [Not Recovered/Not Resolved]
  - Cholecystitis [Unknown]
  - Vision blurred [Unknown]
  - Diplopia [Unknown]
  - Abdominal distension [Not Recovered/Not Resolved]

NARRATIVE: CASE EVENT DATE: 20220101
